FAERS Safety Report 19501980 (Version 1)
Quarter: 2021Q3

REPORT INFORMATION
  Report Type: Spontaneous
  Country: US (occurrence: US)
  Receive Date: 20210706
  Receipt Date: 20210706
  Transmission Date: 20211014
  Serious: No
  Sender: FDA-Public Use
  Company Number: None

PATIENT
  Age: 14 Year
  Sex: Male
  Weight: 104.33 kg

DRUGS (2)
  1. ASENAPINE. [Suspect]
     Active Substance: ASENAPINE
     Indication: AUTISM SPECTRUM DISORDER
     Route: 060
     Dates: start: 20190821
  2. ASENAPINE. [Suspect]
     Active Substance: ASENAPINE
     Indication: DISRUPTIVE MOOD DYSREGULATION DISORDER
     Route: 060
     Dates: start: 20190821

REACTIONS (5)
  - Product substitution issue [None]
  - Product solubility abnormal [None]
  - Insomnia [None]
  - Psychiatric decompensation [None]
  - Irritability [None]

NARRATIVE: CASE EVENT DATE: 20210205
